FAERS Safety Report 13164350 (Version 1)
Quarter: 2017Q1

REPORT INFORMATION
  Report Type: Spontaneous
  Country: DE (occurrence: DE)
  Receive Date: 20170130
  Receipt Date: 20170130
  Transmission Date: 20170428
  Serious: Yes (Hospitalization)
  Sender: FDA-Public Use
  Company Number: DE-SA-2017SA011426

PATIENT
  Age: 30 Year
  Sex: Male

DRUGS (1)
  1. CLEXANE [Suspect]
     Active Substance: ENOXAPARIN SODIUM
     Indication: POSTOPERATIVE CARE
     Route: 051
     Dates: start: 201701, end: 201701

REACTIONS (3)
  - Dizziness [Recovered/Resolved]
  - Blood pressure increased [Recovered/Resolved]
  - Hypersensitivity [Recovered/Resolved]

NARRATIVE: CASE EVENT DATE: 201701
